FAERS Safety Report 5495029-9 (Version None)
Quarter: 2007Q4

REPORT INFORMATION
  Report Type: 
  Country: None (occurrence: None)
  Receive Date: 20071024
  Receipt Date: 20071010
  Transmission Date: 20080405
  Serious: Yes (Death)
  Sender: FDA-Public Use
  Company Number: CA-SHR-CA-SHR-03-001874

PATIENT
  Age: 54 Year
  Sex: Male

DRUGS (3)
  1. BETASERON [Suspect]
     Indication: MULTIPLE SCLEROSIS
     Dosage: 8 MIU, EVERY 2D
     Route: 048
     Dates: start: 19980302, end: 20030127
  2. ACETAMINOPHEN [Concomitant]
     Route: 048
     Dates: end: 20030101
  3. MUSCLE RELAXANTS [Concomitant]
     Dosage: UNK, AS REQ'D
     Dates: end: 20030101

REACTIONS (1)
  - CARDIAC ARREST [None]
